FAERS Safety Report 23663974 (Version 1)
Quarter: 2024Q1

REPORT INFORMATION
  Report Type: Spontaneous
  Country: US (occurrence: None)
  Receive Date: 20240322
  Receipt Date: 20240322
  Transmission Date: 20240410
  Serious: Yes (Hospitalization)
  Sender: FDA-Public Use
  Company Number: None

PATIENT
  Sex: Female

DRUGS (4)
  1. PIRFENIDONE [Suspect]
     Active Substance: PIRFENIDONE
     Indication: Idiopathic pulmonary fibrosis
     Dosage: FREQUENCY : 3 TIMES A DAY;?
     Route: 048
  2. DOXYCYCL HYC [Concomitant]
  3. LOMOTIL [Concomitant]
  4. OFEV [Concomitant]
     Active Substance: NINTEDANIB

REACTIONS (3)
  - Illness [None]
  - Oxygen saturation abnormal [None]
  - Therapy interrupted [None]
